FAERS Safety Report 13364097 (Version 1)
Quarter: 2017Q1

REPORT INFORMATION
  Report Type: Spontaneous
  Country: US (occurrence: US)
  Receive Date: 20170323
  Receipt Date: 20170323
  Transmission Date: 20170429
  Serious: No
  Sender: FDA-Public Use
  Company Number: US-KASTLE THERAPEUTICS, LLC-2016SA049009

PATIENT
  Sex: Male

DRUGS (2)
  1. KYNAMRO [Suspect]
     Active Substance: MIPOMERSEN SODIUM
     Indication: TYPE IIA HYPERLIPIDAEMIA
     Route: 065
  2. KYNAMRO [Suspect]
     Active Substance: MIPOMERSEN SODIUM
     Route: 065

REACTIONS (2)
  - Injection site reaction [Unknown]
  - Influenza like illness [Unknown]
